FAERS Safety Report 6128505-6 (Version None)
Quarter: 2009Q1

REPORT INFORMATION
  Report Type: 
  Country: None (occurrence: None)
  Receive Date: 20090319
  Receipt Date: 20090305
  Transmission Date: 20090719
  Serious: Yes (Hospitalization)
  Sender: FDA-Public Use
  Company Number: 02100-JPN-06-0468

PATIENT
  Age: 70 Year
  Sex: Female

DRUGS (4)
  1. PLETAL [Suspect]
     Indication: CEREBROVASCULAR STENOSIS
     Dosage: 100 MG, BID
     Route: 048
     Dates: start: 20060921, end: 20060922
  2. LISINOPRIL [Concomitant]
  3. ATROVASTATIN (ATROVASTATIN) [Concomitant]
  4. FAMOTIDINE [Concomitant]

REACTIONS (3)
  - BLOOD PRESSURE DECREASED [None]
  - CEREBRAL INFARCTION [None]
  - ISCHAEMIC STROKE [None]
